FAERS Safety Report 24956342 (Version 5)
Quarter: 2025Q1

REPORT INFORMATION
  Report Type: Spontaneous
  Country: US (occurrence: US)
  Receive Date: 20250211
  Receipt Date: 20250314
  Transmission Date: 20250408
  Serious: No
  Sender: BRISTOL-MYERS SQUIBB COMPANY
  Company Number: US-BRISTOL-MYERS SQUIBB COMPANY-2025-020738

PATIENT
  Age: 45 Year
  Sex: Male

DRUGS (3)
  1. SPRYCEL [Suspect]
     Active Substance: DASATINIB
     Indication: Chronic myeloid leukaemia
     Route: 048
  2. SPRYCEL [Suspect]
     Active Substance: DASATINIB
     Route: 048
  3. SPRYCEL [Suspect]
     Active Substance: DASATINIB
     Route: 048

REACTIONS (9)
  - Bone pain [Unknown]
  - Product use issue [Unknown]
  - Vomiting [Unknown]
  - Decreased appetite [Unknown]
  - Bacterial infection [Unknown]
  - Sinusitis [Unknown]
  - Arthralgia [Unknown]
  - Oedema peripheral [Unknown]
  - Nausea [Unknown]
